FAERS Safety Report 22822303 (Version 6)
Quarter: 2024Q1

REPORT INFORMATION
  Report Type: Report from Study
  Country: NL (occurrence: NL)
  Receive Date: 20230814
  Receipt Date: 20240104
  Transmission Date: 20240410
  Serious: Yes (Death, Hospitalization)
  Sender: FDA-Public Use
  Company Number: NL-ABBVIE-5364398

PATIENT
  Sex: Female

DRUGS (14)
  1. CARBIDOPA\LEVODOPA [Suspect]
     Active Substance: CARBIDOPA\LEVODOPA
     Indication: Parkinson^s disease
     Dosage: MD: 14.1ML, CD: 4.2ML/H, ED: 5.0ML, CND: 3.5ML/H, END: 5.5ML
     Route: 050
     Dates: start: 20230928, end: 20231208
  2. CARBIDOPA\LEVODOPA [Suspect]
     Active Substance: CARBIDOPA\LEVODOPA
     Dosage: MD: 14.1ML, CD: 4.2ML/H, ED: 5.0ML, CND: 3.8ML/H, END: 5.5ML?LAST ADMIN DATE- DEC 2023
     Route: 050
     Dates: start: 20231208, end: 202312
  3. CARBIDOPA\LEVODOPA [Suspect]
     Active Substance: CARBIDOPA\LEVODOPA
     Dosage: ED 4.0 ML; CND 2.9 ML/H?DURATION TEXT: REMAINS AT 24 HOURS
     Route: 050
  4. CARBIDOPA\LEVODOPA [Suspect]
     Active Substance: CARBIDOPA\LEVODOPA
     Dosage: CND 2.6 ML/H?DURATION TEXT: REMAINS AT 24 HOURS
     Route: 050
  5. CARBIDOPA\LEVODOPA [Suspect]
     Active Substance: CARBIDOPA\LEVODOPA
     Dosage: ED 4.0 ML; CND 3.2 ML/H
     Route: 050
     Dates: start: 20230818, end: 20230928
  6. CARBIDOPA\LEVODOPA [Suspect]
     Active Substance: CARBIDOPA\LEVODOPA
     Dosage: ED 4.0 ML; CND 2.3 ML/H?DURATION TEXT: REMAINS AT 24 HOURS
     Route: 050
  7. CARBIDOPA\LEVODOPA [Suspect]
     Active Substance: CARBIDOPA\LEVODOPA
     Dosage: REMAINS AT 16 HOURS
     Route: 050
     Dates: start: 20221101
  8. CARBIDOPA\LEVODOPA [Suspect]
     Active Substance: CARBIDOPA\LEVODOPA
     Dosage: MD 16.0 ML; CD 3.9 ML/H; ED 5.0 ML;
     Route: 050
  9. CARBIDOPA\LEVODOPA [Suspect]
     Active Substance: CARBIDOPA\LEVODOPA
     Dosage: MD 14.1 ML; CD 3.9 ML/H; ED 5.0 ML; END 2.0 ML; CND 1.9 ML/H?DURATION TEXT: REMAINS AT 24 HOURS
     Route: 050
  10. CARBIDOPA\LEVODOPA [Suspect]
     Active Substance: CARBIDOPA\LEVODOPA
     Dosage: ED 2.0 ML; CND 2.1 ML/H?REMAINS AT 16 HOURS
     Route: 050
  11. CARBIDOPA\LEVODOPA [Suspect]
     Active Substance: CARBIDOPA\LEVODOPA
     Dosage: MD 16.0 ML; ED 2.0 ML; CND 1.9 ML/H?DURATION TEXT: REMAINS AT 24 HOURS
     Route: 050
  12. POLYETHYLENE GLYCOLS [Concomitant]
     Active Substance: POLYETHYLENE GLYCOLS
     Indication: Bowel movement irregularity
  13. BENSERAZIDE HYDROCHLORIDE\LEVODOPA [Concomitant]
     Active Substance: BENSERAZIDE HYDROCHLORIDE\LEVODOPA
     Indication: Parkinson^s disease
  14. BENSERAZIDE HYDROCHLORIDE\LEVODOPA [Concomitant]
     Active Substance: BENSERAZIDE HYDROCHLORIDE\LEVODOPA
     Indication: Parkinson^s disease

REACTIONS (22)
  - Euthanasia [Fatal]
  - Loss of personal independence in daily activities [Not Recovered/Not Resolved]
  - Parkinson^s disease [Not Recovered/Not Resolved]
  - Poor quality sleep [Not Recovered/Not Resolved]
  - Arthropathy [Not Recovered/Not Resolved]
  - Coccydynia [Not Recovered/Not Resolved]
  - Muscle rigidity [Not Recovered/Not Resolved]
  - Arthralgia [Not Recovered/Not Resolved]
  - Quality of life decreased [Not Recovered/Not Resolved]
  - Therapeutic product effect incomplete [Recovering/Resolving]
  - Unevaluable event [Not Recovered/Not Resolved]
  - Rehabilitation therapy [Not Recovered/Not Resolved]
  - Device dislocation [Recovered/Resolved]
  - On and off phenomenon [Not Recovered/Not Resolved]
  - Fibroma [Not Recovered/Not Resolved]
  - Limb discomfort [Not Recovered/Not Resolved]
  - Stoma site discharge [Not Recovered/Not Resolved]
  - Feeling abnormal [Not Recovered/Not Resolved]
  - Stoma site erythema [Unknown]
  - Device issue [Unknown]
  - Osteoarthritis [Not Recovered/Not Resolved]
  - Musculoskeletal discomfort [Not Recovered/Not Resolved]

NARRATIVE: CASE EVENT DATE: 20230101
